FAERS Safety Report 7778685-1 (Version None)
Quarter: 2011Q3

REPORT INFORMATION
  Report Type: 
  Country: None (occurrence: None)
  Receive Date: 20110926
  Receipt Date: 20110921
  Transmission Date: 20111222
  Serious: Yes (Death, Hospitalization)
  Sender: FDA-Public Use
  Company Number: GB-B.I. PHARMACEUTICALS,INC./RIDGEFIELD-2010-UK-00239UK

PATIENT
  Sex: Male
  Weight: 56 kg

DRUGS (6)
  1. CALOGEN [Concomitant]
     Indication: NUTRITIONAL SUPPORT
     Dosage: 1 TDS.
     Route: 048
     Dates: start: 20100222
  2. FORTISIPS [Concomitant]
     Indication: NUTRITIONAL SUPPORT
     Dosage: 1 TDS.
     Route: 048
     Dates: start: 20100222
  3. PICOLAX [Concomitant]
     Indication: BOWEL PREPARATION
     Dosage: FORMULATION: SACHET. 1 BD.
     Route: 048
     Dates: start: 20100307
  4. PRADAXA [Suspect]
     Indication: ATRIAL FIBRILLATION
     Dosage: 150 MG
     Route: 048
     Dates: start: 20091109, end: 20100305
  5. PRADAXA [Suspect]
     Dosage: 75 MG
     Route: 048
  6. ETOH [Concomitant]
     Dosage: 3-4 UNITS PER DAY.

REACTIONS (18)
  - CEREBROVASCULAR ACCIDENT [None]
  - COAGULOPATHY [None]
  - PANCREATIC ATROPHY [None]
  - PANCREATOLITHIASIS [None]
  - LETHARGY [None]
  - NAUSEA [None]
  - VOMITING [None]
  - C-REACTIVE PROTEIN INCREASED [None]
  - PLEURAL EFFUSION [None]
  - DIARRHOEA [None]
  - MOBILITY DECREASED [None]
  - INTERNATIONAL NORMALISED RATIO INCREASED [None]
  - GASTROINTESTINAL CARCINOMA [None]
  - JOINT SWELLING [None]
  - HAEMOGLOBIN DECREASED [None]
  - BLOOD POTASSIUM DECREASED [None]
  - PNEUMONIA ASPIRATION [None]
  - POST PROCEDURAL HAEMORRHAGE [None]
